FAERS Safety Report 7406794-5 (Version None)
Quarter: 2011Q2

REPORT INFORMATION
  Report Type: 
  Country: None (occurrence: None)
  Receive Date: 20110411
  Receipt Date: 20110328
  Transmission Date: 20111010
  Serious: Yes (Other)
  Sender: FDA-Public Use
  Company Number: PHHY2011US25606

PATIENT
  Age: 74 Year
  Sex: Female

DRUGS (13)
  1. PREDNISONE [Suspect]
     Dosage: 5 MG, IN THE EVENING
  2. HYDROCODONE BITARTRATE [Concomitant]
  3. PREDNISONE [Suspect]
     Dosage: 10 MG, IN THE MORNING
  4. DEXAMETHASONE [Concomitant]
     Dosage: 4 MG, TID ON SECOND DAY
  5. VICODIN [Concomitant]
     Indication: PAIN
     Dosage: 1 DF, Q6H
  6. DEXAMETHASONE [Concomitant]
     Dosage: 8 MG, UNK
     Route: 042
  7. PROPOXYPHENE HCL AND ACETAMINOPHEN [Concomitant]
  8. AMOXICILLIN [Concomitant]
     Dosage: 500 MG, TID
  9. AFRIN [Concomitant]
     Dosage: 1 DF, BID
  10. DEXAMETHASONE [Concomitant]
     Dosage: 6 MG, TID ON FIRST DAY
  11. PERIDEX [Concomitant]
     Dosage: 1 DF, TID
  12. DEXAMETHASONE [Concomitant]
     Dosage: 2 MG, TID ON THIRD DAY
  13. SUDAFED 12 HOUR [Concomitant]
     Dosage: 1 DF, BID

REACTIONS (5)
  - MALOCCLUSION [None]
  - BONE DENSITY DECREASED [None]
  - TOOTH FRACTURE [None]
  - BONE DISORDER [None]
  - TRAUMATIC OCCLUSION [None]
